FAERS Safety Report 5370135-8 (Version None)
Quarter: 2007Q2

REPORT INFORMATION
  Report Type: 
  Country: None (occurrence: None)
  Receive Date: 20070614
  Receipt Date: 20070216
  Transmission Date: 20071010
  Serious: Yes (Hospitalization)
  Sender: FDA-Public Use
  Company Number: BDI-009159

PATIENT
  Age: 53 Year

DRUGS (1)
  1. MULTIHANCE [Suspect]
     Indication: NUCLEAR MAGNETIC RESONANCE IMAGING
     Dosage: SY
     Dates: start: 20061019, end: 20061019

REACTIONS (2)
  - CHEST PAIN [None]
  - PAIN IN JAW [None]
